FAERS Safety Report 5238304-5 (Version None)
Quarter: 2007Q1

REPORT INFORMATION
  Report Type: 
  Country: None (occurrence: None)
  Receive Date: 20070209
  Receipt Date: 20070209
  Transmission Date: 20070707
  Serious: No
  Sender: FDA-Public Use
  Company Number: None

PATIENT
  Age: 33 Year
  Sex: Female
  Weight: 73.4827 kg

DRUGS (3)
  1. GENERIC VERSION OF CLIMARA 0.1 MG PATCH [Suspect]
     Indication: MENSTRUAL DISORDER
     Dosage: 0.1 MG D Q WK AS DIR TRANSDER 061
     Route: 062
     Dates: start: 20070118
  2. GENERIC VERSION OF CLIMARA 0.1 MG PATCH [Suspect]
     Indication: MIGRAINE
     Dosage: 0.1 MG D Q WK AS DIR TRANSDER 061
     Route: 062
     Dates: start: 20070118
  3. NOVARING [Concomitant]

REACTIONS (4)
  - PHOTOSENSITIVITY REACTION [None]
  - PRURITUS [None]
  - SKIN EXFOLIATION [None]
  - URTICARIA [None]
